FAERS Safety Report 18062848 (Version 1)
Quarter: 2020Q3

REPORT INFORMATION
  Report Type: Spontaneous
  Country: DE (occurrence: DE)
  Receive Date: 20200724
  Receipt Date: 20200724
  Transmission Date: 20201103
  Serious: Yes (Hospitalization, Other)
  Sender: FDA-Public Use
  Company Number: DE-PFIZER INC-2020276815

PATIENT
  Sex: Male

DRUGS (27)
  1. CAPTOPRIL. [Suspect]
     Active Substance: CAPTOPRIL
     Indication: HYPERTENSION
     Dosage: 50 MG, 2X/DAY
     Dates: start: 201112
  2. VALSARTAN 1A PHARMA [Suspect]
     Active Substance: VALSARTAN
     Dosage: 0.5 DF 2X/DAY
     Dates: start: 20140710, end: 20180717
  3. VALSARTAN 1A PHARMA [Suspect]
     Active Substance: VALSARTAN
     Dosage: 0.5 DF 2X/DAY
     Dates: start: 20120313, end: 20180709
  4. PROPRANOLOL [Suspect]
     Active Substance: PROPRANOLOL HYDROCHLORIDE
     Indication: ESSENTIAL TREMOR
     Dosage: UNK
     Dates: start: 201203, end: 201203
  5. NEBIVOLOL. [Concomitant]
     Active Substance: NEBIVOLOL
     Dosage: UNK
     Dates: start: 201112
  6. MUNOBAL [Concomitant]
     Active Substance: FELODIPINE
     Indication: HYPERTENSION
     Dosage: 10 MG, (5 MG 2X PER DAY) DAILY
  7. BISOPROLOL [Concomitant]
     Active Substance: BISOPROLOL
     Indication: HYPERTENSION
     Dosage: 2.5 MG, 2X/DAY
  8. DIURETIC [HYDROCHLOROTHIAZIDE] [Concomitant]
     Active Substance: HYDROCHLOROTHIAZIDE
     Dosage: (1?0?0)
  9. ACERCOMP [Concomitant]
     Indication: HYPERTENSION
     Dosage: (0?0?1)
     Dates: start: 1998
  10. KERLONE [Concomitant]
     Active Substance: BETAXOLOL HYDROCHLORIDE
     Dosage: 10 MG, DAILY
     Dates: end: 201112
  11. HYDROCHLOORTHIAZIDE [Suspect]
     Active Substance: HYDROCHLOROTHIAZIDE
     Dosage: UNK
  12. VALSARTAN 1A PHARMA [Suspect]
     Active Substance: VALSARTAN
     Dosage: 80 MG, 2X/DAY
  13. TOREM [TORASEMIDE] [Concomitant]
     Active Substance: TORSEMIDE
     Indication: HYPERTENSION
     Dosage: 5 MG, 1X/DAY
     Dates: start: 2018, end: 2018
  14. CANDESARTAN. [Concomitant]
     Active Substance: CANDESARTAN
     Dosage: UNK
  15. METOPROLOL. [Suspect]
     Active Substance: METOPROLOL
     Indication: ESSENTIAL TREMOR
     Dosage: UNK
     Dates: start: 201203, end: 201203
  16. VALSARTAN 1A PHARMA [Suspect]
     Active Substance: VALSARTAN
     Dosage: 80 MG, 4X/DAY
  17. TORASEMID [Concomitant]
     Active Substance: TORSEMIDE
     Dosage: 5MG , 1X / DAY
     Dates: start: 1998, end: 2014
  18. MOXONIDINE [Suspect]
     Active Substance: MOXONIDINE
     Dosage: UNK
  19. VALSARTAN 1A PHARMA [Suspect]
     Active Substance: VALSARTAN
     Indication: HYPERTENSION
     Dosage: UNK, 1X/DAY
     Dates: start: 2013, end: 2013
  20. BETABLOCK [Concomitant]
     Dosage: UNK
  21. AMLODIPINE BESILATE [Suspect]
     Active Substance: AMLODIPINE BESYLATE
     Indication: HYPERTENSION
     Dosage: 5 MG, 2X/DAY
  22. VERAPAMIL [Suspect]
     Active Substance: VERAPAMIL HYDROCHLORIDE
     Dosage: UNK
  23. CLOPIDOGREL [Concomitant]
     Active Substance: CLOPIDOGREL BISULFATE
     Indication: CORONARY ARTERY DISEASE
     Dosage: 75 MG, 1X/DAY
     Dates: start: 2015
  24. PANTOZOLE [Concomitant]
     Active Substance: PANTOPRAZOLE SODIUM
     Indication: ABDOMINAL DISCOMFORT
     Dosage: 20 MG, 1X/DAY
     Dates: start: 2014
  25. TORASEMID [Concomitant]
     Active Substance: TORSEMIDE
     Indication: HYPERTENSION
     Dosage: 1/2 MG, 2X/DAY
     Dates: start: 1998, end: 2014
  26. IBUPROFEN. [Concomitant]
     Active Substance: IBUPROFEN
     Indication: INTERVERTEBRAL DISC PROTRUSION
     Dosage: 600 MG, UNK
     Dates: start: 2018, end: 2018
  27. KERLONE [Concomitant]
     Active Substance: BETAXOLOL HYDROCHLORIDE
     Dosage: 20 MG, DAILY

REACTIONS (34)
  - Sleep apnoea syndrome [Unknown]
  - Duodenitis [Unknown]
  - Memory impairment [Recovering/Resolving]
  - Solar lentigo [Unknown]
  - Factor VII deficiency [Unknown]
  - Migraine with aura [Recovered/Resolved]
  - Vertigo [Recovered/Resolved]
  - Abdominal pain [Unknown]
  - Diverticulum [Unknown]
  - Merycism [Unknown]
  - Dry mouth [Unknown]
  - Actinic keratosis [Recovered/Resolved]
  - Spinal osteoarthritis [Unknown]
  - Snoring [Unknown]
  - Peripheral venous disease [Unknown]
  - Facet joint syndrome [Unknown]
  - Fear of disease [Not Recovered/Not Resolved]
  - Nausea [Recovered/Resolved]
  - Neuralgia [Unknown]
  - Hernia [Unknown]
  - Breathing-related sleep disorder [Unknown]
  - Oesophageal candidiasis [Unknown]
  - Dyspnoea [Unknown]
  - Head discomfort [Unknown]
  - Headache [Unknown]
  - Fatigue [Recovered/Resolved]
  - Orthostatic intolerance [Recovered/Resolved]
  - Leukopenia [Unknown]
  - Dizziness [Unknown]
  - Skin erosion [Unknown]
  - Quality of life decreased [Unknown]
  - Cognitive disorder [Recovered/Resolved]
  - Melanocytic naevus [Unknown]
  - Wound [Unknown]

NARRATIVE: CASE EVENT DATE: 201202
